FAERS Safety Report 8612977 (Version 2)
Quarter: 2014Q1

REPORT INFORMATION
  Report Type: Spontaneous
  Country: US (occurrence: None)
  Receive Date: 20120323
  Receipt Date: 20130305
  Transmission Date: 20141002
  Serious: Yes (Other)
  Sender: FDA-Public Use
  Company Number: 163-21880-11021840

PATIENT
  Age: 68 Year
  Sex: Female
  Weight: 91.63 kg

DRUGS (5)
  1. REVLIMID [Suspect]
     Indication: PLASMA CELL MYELOMA
     Route: 048
     Dates: start: 20101020
  2. BENICAR/HCTZ (BENICAR HCT) [Concomitant]
  3. DEXAMETHASONE [Concomitant]
  4. LABETALOL [Concomitant]
  5. METFORMIN [Concomitant]

REACTIONS (4)
  - Rash [None]
  - Neuropathy peripheral [None]
  - Dizziness [None]
  - Rash pruritic [None]
